FAERS Safety Report 9192907 (Version 1)
Quarter: 2013Q1

REPORT INFORMATION
  Report Type: Spontaneous
  Country: IT (occurrence: IT)
  Receive Date: 20130327
  Receipt Date: 20130327
  Transmission Date: 20140127
  Serious: Yes (Hospitalization)
  Sender: FDA-Public Use
  Company Number: PHHY2013IT028611

PATIENT
  Age: 44 Year
  Sex: Female

DRUGS (6)
  1. CITALOPRAM [Suspect]
     Route: 048
     Dates: start: 20130310, end: 20130310
  2. METFORMIN [Suspect]
     Route: 048
     Dates: start: 20130310, end: 20130310
  3. MINIAS [Suspect]
     Dates: start: 20130310, end: 20130310
  4. DELORAZEPAM [Suspect]
     Route: 048
     Dates: start: 20130310, end: 20130310
  5. HUMULIN [Suspect]
     Route: 030
     Dates: start: 20130310, end: 20130310
  6. AMARYL [Suspect]
     Route: 048
     Dates: start: 20130310, end: 20130310

REACTIONS (1)
  - Toxicity to various agents [Recovering/Resolving]
